FAERS Safety Report 6782885-7 (Version None)
Quarter: 2010Q2

REPORT INFORMATION
  Report Type: 
  Country: None (occurrence: None)
  Receive Date: 20100622
  Receipt Date: 20100617
  Transmission Date: 20101027
  Serious: Yes (Other)
  Sender: FDA-Public Use
  Company Number: US-ASTRAZENECA-2009UW12078

PATIENT
  Sex: Male

DRUGS (15)
  1. SEROQUEL [Suspect]
     Route: 048
     Dates: start: 20010622
  2. IMIPRAMINE HCL [Concomitant]
     Dates: start: 20010207
  3. LOTREL [Concomitant]
     Dosage: 5/10 MG
     Dates: start: 20010223
  4. HYDROCHLOROTHIAZIDE [Concomitant]
     Dosage: 25
     Dates: start: 20010320
  5. XANAX [Concomitant]
     Dates: start: 20010327
  6. PROTONIX [Concomitant]
     Dates: start: 20010420
  7. TOPROL-XL [Concomitant]
     Dosage: 50 MG TO 200 MG
     Dates: start: 20010327
  8. WELLBUTRIN SR [Concomitant]
     Dates: start: 20010607
  9. PROZAC [Concomitant]
     Dates: start: 20010607
  10. DISULFIRAM [Concomitant]
     Dates: start: 20010607
  11. CELEXA [Concomitant]
     Dates: start: 20010622
  12. LAMICTAL [Concomitant]
     Indication: ANXIETY
     Dates: start: 20060522
  13. LAMICTAL [Concomitant]
     Indication: BIPOLAR I DISORDER
     Dates: start: 20060522
  14. EFFEXOR [Concomitant]
     Indication: ANXIETY
     Dates: start: 20060522
  15. EFFEXOR [Concomitant]
     Indication: BIPOLAR I DISORDER
     Dates: start: 20060522

REACTIONS (2)
  - DIABETES MELLITUS [None]
  - NEUROPATHY PERIPHERAL [None]
